FAERS Safety Report 4689275-1 (Version None)
Quarter: 2005Q2

REPORT INFORMATION
  Report Type: 
  Country: None (occurrence: None)
  Receive Date: 20050613
  Receipt Date: 20050310
  Transmission Date: 20051028
  Serious: Yes (Hospitalization, Disabling)
  Sender: FDA-Public Use
  Company Number: US-MERCK-0503USA02381

PATIENT
  Age: 57 Year
  Sex: Male
  Weight: 77 kg

DRUGS (3)
  1. VIOXX [Suspect]
     Indication: ARTHRITIS
     Route: 048
     Dates: start: 20030701, end: 20031107
  2. ASPIRIN [Concomitant]
     Route: 048
     Dates: start: 19990101
  3. SYNTHROID [Concomitant]
     Route: 065

REACTIONS (22)
  - ANGINA UNSTABLE [None]
  - ARTERIOSPASM CORONARY [None]
  - BRADYARRHYTHMIA [None]
  - CARDIOVASCULAR DISORDER [None]
  - CORONARY ARTERY ATHEROSCLEROSIS [None]
  - CORONARY ARTERY DISEASE [None]
  - CORONARY ARTERY STENOSIS [None]
  - DEPRESSION [None]
  - DISTURBANCE IN ATTENTION [None]
  - EJECTION FRACTION DECREASED [None]
  - HYPERLIPIDAEMIA [None]
  - MITRAL VALVE INCOMPETENCE [None]
  - MITRAL VALVE PROLAPSE [None]
  - MYOCARDIAL INFARCTION [None]
  - PALPITATIONS [None]
  - PANIC DISORDER [None]
  - SINUS BRADYCARDIA [None]
  - STRESS [None]
  - VENTRICULAR DYSFUNCTION [None]
  - VENTRICULAR EXTRASYSTOLES [None]
  - VENTRICULAR HYPERTROPHY [None]
  - VENTRICULAR HYPOKINESIA [None]
